FAERS Safety Report 12080799 (Version 4)
Quarter: 2016Q4

REPORT INFORMATION
  Report Type: Spontaneous
  Country: PR (occurrence: PR)
  Receive Date: 20160216
  Receipt Date: 20161214
  Transmission Date: 20170206
  Serious: Yes (Death, Hospitalization, Other)
  Sender: FDA-Public Use
  Company Number: PR-PFIZER INC-2016070003

PATIENT
  Age: 39 Year
  Sex: Male
  Weight: 90.7 kg

DRUGS (10)
  1. DILANTIN [Suspect]
     Active Substance: PHENYTOIN
     Dosage: 50 MG, UNK
  2. METOPROLOL. [Concomitant]
     Active Substance: METOPROLOL
     Indication: BLOOD PRESSURE ABNORMAL
     Dosage: 100 MG, 1X/DAY
     Dates: start: 1998
  3. LOSARTAN. [Concomitant]
     Active Substance: LOSARTAN
     Indication: BLOOD PRESSURE ABNORMAL
     Dosage: 100 MG, 1X/DAY
     Dates: start: 1998
  4. LOSARTAN. [Concomitant]
     Active Substance: LOSARTAN
     Dosage: UNK
     Dates: start: 2001, end: 2016
  5. METOPROLOL. [Concomitant]
     Active Substance: METOPROLOL
     Dosage: UNK
     Dates: start: 2001, end: 2016
  6. LYRICA [Suspect]
     Active Substance: PREGABALIN
     Indication: FIBROMYALGIA
     Dosage: 75 MG, 4X/DAY
     Dates: start: 2004, end: 20160130
  7. LYRICA [Suspect]
     Active Substance: PREGABALIN
     Indication: PARALYSIS
  8. DILANTIN [Suspect]
     Active Substance: PHENYTOIN
     Indication: SEIZURE
     Dosage: 200 MG IN THE MORNING AND 250 MG AT NIGHT
     Dates: start: 2001, end: 20160201
  9. LYRICA [Suspect]
     Active Substance: PREGABALIN
     Indication: TUMOUR PAIN
  10. LYRICA [Suspect]
     Active Substance: PREGABALIN
     Indication: PAIN
     Dosage: 75 MG, 4X/DAY
     Dates: end: 20160201

REACTIONS (5)
  - Hypertension [Fatal]
  - Brain neoplasm [Fatal]
  - Pneumonia [Fatal]
  - Product use issue [Unknown]
  - Dysphagia [Fatal]

NARRATIVE: CASE EVENT DATE: 2001
